FAERS Safety Report 4833408-0 (Version None)
Quarter: 2005Q4

REPORT INFORMATION
  Report Type: 
  Country: None (occurrence: None)
  Receive Date: 20051117
  Receipt Date: 20051103
  Transmission Date: 20060501
  Serious: Yes (Hospitalization)
  Sender: FDA-Public Use
  Company Number: 2005-CZ-00900

PATIENT
  Sex: Female

DRUGS (2)
  1. PAXENE (PACLITAXEL) [Suspect]
     Indication: BREAST CANCER
     Dosage: INTRAVENOUS
     Route: 042
     Dates: start: 20050908
  2. GEMCITABINE [Concomitant]
     Indication: BREAST CANCER

REACTIONS (3)
  - DIZZINESS [None]
  - HYPONATRAEMIA [None]
  - TREMOR [None]
